FAERS Safety Report 8061148-6 (Version None)
Quarter: 2012Q1

REPORT INFORMATION
  Report Type: 
  Country: None (occurrence: None)
  Receive Date: 20120120
  Receipt Date: 20110610
  Transmission Date: 20120608
  Serious: No
  Sender: FDA-Public Use
  Company Number: US-ALLERGAN-1107957US

PATIENT
  Age: 64 Year
  Sex: Female

DRUGS (1)
  1. RESTASIS [Suspect]
     Indication: DRY EYE
     Dosage: 1 GTT, BID
     Route: 047
     Dates: start: 20040101, end: 20110501

REACTIONS (7)
  - PHOTOPHOBIA [None]
  - CORNEAL ABRASION [None]
  - CONJUNCTIVITIS INFECTIVE [None]
  - FOREIGN BODY SENSATION IN EYES [None]
  - EYE INFECTION VIRAL [None]
  - OCULAR HYPERAEMIA [None]
  - VISION BLURRED [None]
